FAERS Safety Report 8453357 (Version 15)
Quarter: 2012Q4

REPORT INFORMATION
  Report Type: 
  Country: AU (occurrence: AU)
  Receive Date: 20120312
  Receipt Date: 20120906
  Transmission Date: 20130627
  Serious: Yes (Hospitalization, Other)
  Sender: FDA-Public Use
  Company Number: PHHY2012AU019940

PATIENT
  Age: 78 Year
  Sex: Female
  Weight: 100 kg

DRUGS (17)
  1. CLOZARIL [Suspect]
     Dosage: 200 mg, UNK
     Route: 048
     Dates: start: 19971003
  2. CLOZARIL [Suspect]
     Dosage: 250 mg, UNK
     Dates: start: 20120508
  3. CLOZARIL [Suspect]
     Dosage: 200 mg, UNK
  4. CLOZAPINE [Suspect]
     Dosage: 200 mg
     Dates: start: 19971003
  5. FLUDROCORTISONE [Concomitant]
     Dosage: 1 DF, take one tablet in the morning
  6. GLICLAZIDE [Concomitant]
     Dosage: 2 DF, take two tablets in the morning with food
  7. VALACICLOVIR [Concomitant]
     Dosage: 1 DF, BID (take 1 tablet twice a day)
  8. RANITIDINE [Concomitant]
     Indication: ULCER
     Dosage: 1 DF, BID (1 tablet twice a day)
  9. TRIMETOPRIM-SULFA [Concomitant]
     Dosage: 1 DF, BID (twice a day with food)
  10. DOCUSATE [Concomitant]
     Dosage: 2 DF, BID (Take two tablets twice a day)
  11. SENNA [Concomitant]
     Dosage: 2 DF, BID (Take two tablets twice a day)
  12. POTASSIUM CHLORIDE [Concomitant]
     Dosage: 2 DF, TID (Take two tablets three times a day with food)
  13. MAGNESIUM ASPARTATE [Concomitant]
     Dosage: 3 DF, TID (Take two tablets three times a day)
  14. PRAVASTATIN [Concomitant]
     Dosage: 2 DF, take two tablets at night
  15. NYSTATIN [Concomitant]
     Dosage: 1 ml, QID
     Route: 048
  16. CHLORHEXIDINE GLUCONATE [Concomitant]
     Dosage: 10 ml, QID
  17. VALPROATE SODIUM [Concomitant]
     Dosage: 1 DF, TID (take 1 tablet in the morning and take 2 tablets at night)

REACTIONS (9)
  - Ear infection [Unknown]
  - Mycobacterial infection [Unknown]
  - Lymphoma [Unknown]
  - Neoplasm malignant [Unknown]
  - White blood cell count increased [Recovered/Resolved]
  - Neutrophil count increased [Recovered/Resolved]
  - White blood cell count decreased [Not Recovered/Not Resolved]
  - Neutropenia [Unknown]
  - Neutrophil count decreased [Recovered/Resolved]
